FAERS Safety Report 4565190-9 (Version None)
Quarter: 2005Q1

REPORT INFORMATION
  Report Type: 
  Country: None (occurrence: None)
  Receive Date: 20050127
  Receipt Date: 20050127
  Transmission Date: 20050727
  Serious: Yes (Other)
  Sender: FDA-Public Use
  Company Number: None

PATIENT
  Age: 64 Year
  Sex: Female

DRUGS (1)
  1. TEMOVATE [Suspect]
     Indication: PSORIASIS
     Dosage: 1 X 2 X DAY
     Dates: start: 20041001

REACTIONS (2)
  - CONDITION AGGRAVATED [None]
  - PSORIASIS [None]
